FAERS Safety Report 8373121-9 (Version None)
Quarter: 2012Q2

REPORT INFORMATION
  Report Type: 
  Country: None (occurrence: None)
  Receive Date: 20120521
  Receipt Date: 20120517
  Transmission Date: 20120825
  Serious: No
  Sender: FDA-Public Use
  Company Number: US-PFIZER INC-2012120561

PATIENT
  Sex: Female
  Weight: 63 kg

DRUGS (3)
  1. ATORVASTATIN CALCIUM [Suspect]
     Dosage: 20 MG, 1X/DAY
     Route: 048
     Dates: start: 20111201
  2. LISINOPRIL [Concomitant]
     Dosage: UNK
  3. ATORVASTATIN CALCIUM [Suspect]
     Indication: BLOOD CHOLESTEROL INCREASED
     Dosage: 40 MG, 1X/DAY
     Route: 048
     Dates: start: 20111201, end: 20111201

REACTIONS (2)
  - NAUSEA [None]
  - MUSCLE SPASMS [None]
